FAERS Safety Report 6384461-7 (Version None)
Quarter: 2009Q4

REPORT INFORMATION
  Report Type: 
  Country: None (occurrence: None)
  Receive Date: 20091001
  Receipt Date: 20090928
  Transmission Date: 20100525
  Serious: Yes (Hospitalization)
  Sender: FDA-Public Use
  Company Number: DE-SANOFI-SYNTHELABO-F04200900100

PATIENT
  Age: 48 Year
  Sex: Male

DRUGS (4)
  1. DOCETAXEL [Suspect]
     Indication: GASTRIC CANCER
     Route: 041
     Dates: start: 20090909, end: 20090909
  2. FOLINIC ACID [Suspect]
     Indication: GASTRIC CANCER
     Route: 041
     Dates: start: 20090909, end: 20090909
  3. FLUOROURACIL [Suspect]
     Indication: GASTRIC CANCER
     Route: 041
     Dates: start: 20090909, end: 20090909
  4. OXALIPLATIN [Suspect]
     Indication: GASTRIC CANCER
     Route: 041
     Dates: start: 20090909, end: 20090909

REACTIONS (1)
  - LARGE INTESTINE PERFORATION [None]
